FAERS Safety Report 15996340 (Version 6)
Quarter: 2019Q2

REPORT INFORMATION
  Report Type: Report from Study
  Country: US (occurrence: US)
  Receive Date: 20190222
  Receipt Date: 20190621
  Transmission Date: 20190711
  Serious: Yes (Hospitalization)
  Sender: FDA-Public Use
  Company Number: US-ACTELION-A-NJ2019-186606

PATIENT
  Age: 26 Year
  Sex: Female
  Weight: 52.15 kg

DRUGS (11)
  1. VELETRI [Suspect]
     Active Substance: EPOPROSTENOL
     Indication: PULMONARY ARTERIAL HYPERTENSION
     Dosage: 82 NG/KG, PER MIN
     Route: 042
  2. DIGOX [Concomitant]
     Active Substance: DIGOXIN
  3. REMODULIN [Concomitant]
     Active Substance: TREPROSTINIL
  4. SPIRONOLACTONE. [Concomitant]
     Active Substance: SPIRONOLACTONE
  5. FUROSEMIDE. [Concomitant]
     Active Substance: FUROSEMIDE
  6. FLOLAN [Concomitant]
     Active Substance: EPOPROSTENOL SODIUM
  7. ASPIRIN 81 [Concomitant]
     Active Substance: ASPIRIN
     Dosage: 81 MG, QD
  8. ADCIRCA [Concomitant]
     Active Substance: TADALAFIL
  9. OPSUMIT [Suspect]
     Active Substance: MACITENTAN
     Indication: PULMONARY ARTERIAL HYPERTENSION
     Dosage: 10 MG, QD
     Route: 048
     Dates: start: 20180714
  10. VELETRI [Suspect]
     Active Substance: EPOPROSTENOL
     Dosage: 76 NG/KG, PER MIN
     Route: 042
  11. POTASSIUM CHLORIDE. [Concomitant]
     Active Substance: POTASSIUM CHLORIDE

REACTIONS (6)
  - Therapy change [Not Recovered/Not Resolved]
  - Device failure [Recovered/Resolved]
  - Blood potassium decreased [Unknown]
  - Fluid retention [Unknown]
  - Device alarm issue [Unknown]
  - Dyspnoea [Unknown]

NARRATIVE: CASE EVENT DATE: 20190317
